FAERS Safety Report 23103626 (Version 1)
Quarter: 2023Q4

REPORT INFORMATION
  Report Type: Spontaneous
  Country: US (occurrence: US)
  Receive Date: 20231025
  Receipt Date: 20231025
  Transmission Date: 20240109
  Serious: No
  Sender: FDA-Public Use
  Company Number: US-AMGEN-USASP2023189606

PATIENT
  Age: 54 Year
  Sex: Female

DRUGS (1)
  1. TAVNEOS [Suspect]
     Active Substance: AVACOPAN
     Indication: Granulomatosis with polyangiitis
     Dosage: 30 MILLIGRAM, BID [TAKE 3 CAPSULES (30 MG) BY MOUTH TWICE DAILY WITH FOOD]
     Route: 048
     Dates: start: 20220823

REACTIONS (1)
  - Gastroenteritis viral [Unknown]
